FAERS Safety Report 7739632-1 (Version None)
Quarter: 2011Q3

REPORT INFORMATION
  Report Type: 
  Country: None (occurrence: None)
  Receive Date: 20110909
  Receipt Date: 20110825
  Transmission Date: 20111222
  Serious: Yes (Other)
  Sender: FDA-Public Use
  Company Number: US-ARROW GEN-2011-14251

PATIENT

DRUGS (2)
  1. MIRTAZAPINE [Suspect]
     Dosage: 30 MG, QPM
     Route: 048
  2. MIRTAZAPINE [Suspect]
     Indication: PRODUCT USED FOR UNKNOWN INDICATION
     Dosage: 15 MG, QPM
     Route: 048

REACTIONS (10)
  - DELIRIUM [None]
  - HALLUCINATION [None]
  - DRUG INTOLERANCE [None]
  - SOMNOLENCE [None]
  - FATIGUE [None]
  - ASCITES [None]
  - INSOMNIA [None]
  - DYSPHAGIA [None]
  - DRY MOUTH [None]
  - NAUSEA [None]
